FAERS Safety Report 9818533 (Version 1)
Quarter: 2013Q4

REPORT INFORMATION
  Report Type: Spontaneous
  Country: US (occurrence: None)
  Receive Date: 20131223
  Receipt Date: 20131223
  Transmission Date: 20140711
  Serious: No
  Sender: FDA-Public Use
  Company Number: 217795

PATIENT
  Age: 82 Year
  Sex: Female

DRUGS (8)
  1. PICATO [Suspect]
     Indication: ACTINIC KERATOSIS
     Dosage: 1 IN 1 D TOPICAL
     Dates: start: 20120525, end: 20120526
  2. PREMARIN (ESTROGENS CONJUGATED) [Concomitant]
  3. LANOXIN (DIGOXIN) [Concomitant]
  4. PLAVIS (CLOPIDOGREL) [Concomitant]
  5. NORVASC (AMLODIPINE BESILATE) [Concomitant]
  6. LISINOPRIL (LISINOPRIL) [Concomitant]
  7. ATENOLOL (ATENOLOL) [Concomitant]
  8. MELOXICAM (MELOXICAM) [Concomitant]

REACTIONS (2)
  - Application site erythema [None]
  - Drug administration error [None]
